FAERS Safety Report 8998340 (Version 1)
Quarter: 2013Q1

REPORT INFORMATION
  Report Type: Spontaneous
  Country: US (occurrence: US)
  Receive Date: 20130105
  Receipt Date: 20130105
  Transmission Date: 20140127
  Serious: No
  Sender: FDA-Public Use
  Company Number: US-009507513-1212USA010891

PATIENT
  Sex: Female

DRUGS (3)
  1. NASONEX [Suspect]
     Dosage: UNK
     Route: 045
     Dates: start: 2009
  2. LISINOPRIL [Concomitant]
  3. SPIRIVA [Concomitant]

REACTIONS (1)
  - Epistaxis [Recovered/Resolved]
